FAERS Safety Report 15861196 (Version 2)
Quarter: 2019Q1

REPORT INFORMATION
  Report Type: Spontaneous
  Country: JP (occurrence: JP)
  Receive Date: 20190124
  Receipt Date: 20190314
  Transmission Date: 20190417
  Serious: Yes (Death, Other)
  Sender: FDA-Public Use
  Company Number: JP-AMGEN-JPNSP2019011522

PATIENT
  Age: 47 Year
  Sex: Female
  Weight: 46 kg

DRUGS (6)
  1. RANMARK [Suspect]
     Active Substance: DENOSUMAB
     Indication: METASTASES TO BONE
     Dosage: 120 MILLIGRAM 22 TIMES OF TOTAL DOSAGE NUMBER OF TIMES
     Route: 058
     Dates: start: 20120719, end: 20160225
  2. XYZAL [Concomitant]
     Active Substance: LEVOCETIRIZINE DIHYDROCHLORIDE
     Dosage: 5 MILLIGRAM, QD
     Route: 048
     Dates: start: 20110929
  3. DENOTAS [Concomitant]
     Active Substance: CALCIUM CARBONATE\CHOLECALCIFEROL\MAGNESIUM CARBONATE
     Dosage: 20 MILLIGRAM, QD
     Route: 048
     Dates: start: 20130822
  4. GRACEVIT [Concomitant]
     Active Substance: SITAFLOXACIN
     Indication: OSTEONECROSIS OF JAW
     Dosage: 50 MILLIGRAM, BID
     Route: 048
  5. LOXOPROFEN NA [Concomitant]
     Active Substance: LOXOPROFEN SODIUM
     Dosage: 60 MILLIGRAM, QD
     Route: 048
  6. GRACEVIT [Concomitant]
     Active Substance: SITAFLOXACIN
     Dosage: 50 MILLIGRAM, BID
     Route: 048
     Dates: start: 20140501, end: 20150609

REACTIONS (2)
  - Osteonecrosis of jaw [Unknown]
  - Death [Fatal]

NARRATIVE: CASE EVENT DATE: 20140801
